FAERS Safety Report 4918641-1 (Version None)
Quarter: 2006Q1

REPORT INFORMATION
  Report Type: 
  Country: None (occurrence: None)
  Receive Date: 20060221
  Receipt Date: 20060221
  Transmission Date: 20060701
  Serious: Yes (Death)
  Sender: FDA-Public Use
  Company Number: None

PATIENT
  Age: 64 Year
  Sex: Female

DRUGS (3)
  1. TAXOTERE [Suspect]
     Indication: PANCREATIC CARCINOMA METASTATIC
     Dosage: 40 MG/M2    EVERY 2 WKS  IV   1 DOSE
     Route: 042
     Dates: start: 20060201, end: 20060201
  2. GEMZAR [Suspect]
     Indication: PANCREATIC CARCINOMA METASTATIC
     Dosage: 600 MG/M2  EVERY 2 WKS  IV   1 DOSE
     Route: 042
     Dates: start: 20060201, end: 20060201
  3. XELODA [Suspect]
     Dosage: 1500 MG/M2 TOTAL/DAY  DAILY/EVERY 2 WKS PO  1 DOSE
     Route: 048
     Dates: start: 20060208, end: 20060208

REACTIONS (1)
  - DEATH [None]
